FAERS Safety Report 13077303 (Version 1)
Quarter: 2016Q4

REPORT INFORMATION
  Report Type: Spontaneous
  Country: US (occurrence: US)
  Receive Date: 20161230
  Receipt Date: 20161230
  Transmission Date: 20170207
  Serious: Yes (Hospitalization)
  Sender: FDA-Public Use
  Company Number: US-ASTRAZENECA-2016SF36585

PATIENT
  Age: 62 Year
  Sex: Female

DRUGS (17)
  1. ACYCLOVIR. [Concomitant]
     Active Substance: ACYCLOVIR
     Indication: HERPES SIMPLEX
     Route: 048
  2. REPATHA [Concomitant]
     Active Substance: EVOLOCUMAB
     Indication: BLOOD CHOLESTEROL ABNORMAL
     Dosage: 140MG/ML, EVERY TWO WEEKS
     Route: 030
     Dates: start: 2016
  3. OMEPRAZOLE. [Suspect]
     Active Substance: OMEPRAZOLE
     Indication: GASTROOESOPHAGEAL REFLUX DISEASE
     Route: 048
  4. LEVOXYL [Concomitant]
     Active Substance: LEVOTHYROXINE SODIUM
     Route: 048
     Dates: start: 2001
  5. MOVANTIK [Suspect]
     Active Substance: NALOXEGOL OXALATE
     Indication: CONSTIPATION
     Dosage: 12.5MG UNKNOWN
     Route: 048
     Dates: start: 20161220
  6. MECLAZINE [Concomitant]
     Indication: MOTION SICKNESS
     Route: 048
     Dates: start: 2010
  7. MOVANTIK [Suspect]
     Active Substance: NALOXEGOL OXALATE
     Indication: CONSTIPATION
     Dosage: 25.0MG UNKNOWN
     Route: 048
     Dates: start: 201612
  8. ACTEMER [Concomitant]
     Indication: RHEUMATOID ARTHRITIS
     Dosage: EVERY FOUR WEEKS
     Route: 042
  9. ARAVA [Concomitant]
     Active Substance: LEFLUNOMIDE
     Indication: ARTHRITIS
     Route: 048
  10. LANTIS SOLO STAR INSULIN PEN [Concomitant]
     Indication: DIABETES MELLITUS
     Dosage: 30 UNITS, AT NIGHT
     Route: 058
     Dates: start: 2002
  11. ONDENSETRON [Concomitant]
     Active Substance: ONDANSETRON
     Indication: NAUSEA
     Route: 048
     Dates: start: 2013
  12. LASIX [Concomitant]
     Active Substance: FUROSEMIDE
     Route: 048
  13. SPIRONOLACTONE. [Concomitant]
     Active Substance: SPIRONOLACTONE
     Indication: BLOOD PRESSURE ABNORMAL
     Route: 048
     Dates: start: 201611
  14. NEXIUM [Suspect]
     Active Substance: ESOMEPRAZOLE MAGNESIUM
     Indication: GASTROOESOPHAGEAL REFLUX DISEASE
     Route: 048
     Dates: start: 2001
  15. MORPHINE SULFATE. [Concomitant]
     Active Substance: MORPHINE SULFATE
     Indication: PAIN
     Route: 048
     Dates: start: 2016
  16. NOVOLOG [Concomitant]
     Active Substance: INSULIN ASPART
     Indication: DIABETES MELLITUS
     Dosage: 30 UNITS IN THE MORNING, 24 UNITS AT LUNCH, 24 UNITS AT DINNER
     Route: 058
  17. WARFARIN [Concomitant]
     Active Substance: WARFARIN
     Indication: ANTICOAGULANT THERAPY
     Dosage: 7.5 MG WEDNESDAY AND SATURDAYS, 5 MGS ALL OTHER DAYS OF THE WEEK
     Route: 048
     Dates: start: 2004

REACTIONS (15)
  - Renal failure [Unknown]
  - Renal disorder [Unknown]
  - Intentional product misuse [Unknown]
  - Clostridium difficile infection [Unknown]
  - Vomiting [Unknown]
  - Diarrhoea [Unknown]
  - Neck mass [Unknown]
  - Diabetes mellitus [Unknown]
  - Abdominal pain [Unknown]
  - Retching [Unknown]
  - Blood cholesterol increased [Unknown]
  - Haematoma [Unknown]
  - Gastrointestinal hypomotility [Unknown]
  - Rheumatoid arthritis [Unknown]
  - Thrombosis [Unknown]

NARRATIVE: CASE EVENT DATE: 2001
